FAERS Safety Report 13342767 (Version 4)
Quarter: 2017Q2

REPORT INFORMATION
  Report Type: Spontaneous
  Country: DE (occurrence: DE)
  Receive Date: 20170316
  Receipt Date: 20170629
  Transmission Date: 20170830
  Serious: Yes (Other)
  Sender: FDA-Public Use
  Company Number: DE-PFIZER INC-2017109876

PATIENT
  Age: 45 Year
  Sex: Female
  Weight: 110 kg

DRUGS (2)
  1. SAYANA [Suspect]
     Active Substance: MEDROXYPROGESTERONE
     Indication: ANAEMIA
     Dosage: 1 DF, EVERY 2 - 3 MONTHS
     Route: 058
     Dates: start: 20161031
  2. IRON [Concomitant]
     Active Substance: IRON
     Dosage: UNK
     Dates: start: 2016, end: 201704

REACTIONS (10)
  - Adenomyosis [Unknown]
  - Obesity [Unknown]
  - Vulvovaginal dryness [Not Recovered/Not Resolved]
  - Inappropriate schedule of drug administration [Unknown]
  - Menorrhagia [Unknown]
  - Depression [Not Recovered/Not Resolved]
  - Metabolic syndrome [Unknown]
  - Hypertension [Not Recovered/Not Resolved]
  - Glucose urine [Unknown]
  - Product use in unapproved indication [Unknown]

NARRATIVE: CASE EVENT DATE: 2016
